FAERS Safety Report 4559403-7 (Version None)
Quarter: 2005Q1

REPORT INFORMATION
  Report Type: 
  Country: None (occurrence: None)
  Receive Date: 20050120
  Receipt Date: 20050120
  Transmission Date: 20050727
  Serious: Yes (Hospitalization)
  Sender: FDA-Public Use
  Company Number: None

PATIENT
  Age: 58 Year
  Sex: Male

DRUGS (8)
  1. GATIFLOXACIN [Suspect]
     Indication: CELLULITIS
     Dosage: 400 MG QD
  2. TYL #3 [Concomitant]
  3. NAPROXEN [Concomitant]
  4. CAPSAICIN [Concomitant]
  5. NTG SL [Concomitant]
  6. LOPERAMIDE HCL [Concomitant]
  7. EPOETIN ALPHA [Concomitant]
  8. OMEPRAZOLE [Concomitant]

REACTIONS (2)
  - MOVEMENT DISORDER [None]
  - TENDONITIS [None]
